FAERS Safety Report 20057327 (Version 1)
Quarter: 2021Q4

REPORT INFORMATION
  Report Type: Spontaneous
  Country: US (occurrence: None)
  Receive Date: 20211110
  Receipt Date: 20211110
  Transmission Date: 20220303
  Serious: Yes (Disabling, Other)
  Sender: FDA-Public Use
  Company Number: None

PATIENT
  Age: 75 Year
  Sex: Female
  Weight: 112.5 kg

DRUGS (10)
  1. REPATHA [Suspect]
     Active Substance: EVOLOCUMAB
     Indication: Hypercholesterolaemia
     Dosage: OTHER QUANTITY : 1 INJECTION(S);?OTHER FREQUENCY : 1 X MONTH;?
     Route: 058
     Dates: start: 20211023, end: 20211024
  2. GABABENTIN [Concomitant]
  3. METFORMIN [Concomitant]
     Active Substance: METFORMIN HYDROCHLORIDE
  4. LEVOXYL ACTOS [Concomitant]
  5. ATENOLOL [Concomitant]
     Active Substance: ATENOLOL
  6. VENYLFAXINE [Concomitant]
  7. ALLERGY SHOTS [Concomitant]
  8. MULTI VITS WITH MINERALS [Concomitant]
  9. COENZYME Q10 [Concomitant]
     Active Substance: DIETARY SUPPLEMENT\UBIDECARENONE
  10. GLUCOSAMINE [Concomitant]
     Active Substance: GLUCOSAMINE

REACTIONS (6)
  - Irritable bowel syndrome [None]
  - Back pain [None]
  - Nausea [None]
  - Fatigue [None]
  - Abdominal pain upper [None]
  - Feeling abnormal [None]

NARRATIVE: CASE EVENT DATE: 20211025
